FAERS Safety Report 15565264 (Version 1)
Quarter: 2018Q4

REPORT INFORMATION
  Report Type: Spontaneous
  Country: US (occurrence: US)
  Receive Date: 20181030
  Receipt Date: 20181030
  Transmission Date: 20190205
  Serious: Yes (Other)
  Sender: FDA-Public Use
  Company Number: PHHY2018US135964

PATIENT
  Age: 56 Year

DRUGS (1)
  1. GRANULOCYTE COLONY STIMULATING FACTOR [Suspect]
     Active Substance: GRANULOCYTE COLONY-STIMULATING FACTOR NOS
     Indication: HAEMATOPOIETIC STEM CELL MOBILISATION
     Dosage: 10 UG/KG, UNK
     Route: 065

REACTIONS (3)
  - Renal impairment [Recovered/Resolved]
  - Cardiac failure [Unknown]
  - Blood alkaline phosphatase increased [Unknown]
